FAERS Safety Report 7638360-0 (Version None)
Quarter: 2011Q3

REPORT INFORMATION
  Report Type: 
  Country: None (occurrence: None)
  Receive Date: 20110727
  Receipt Date: 20110719
  Transmission Date: 20111222
  Serious: Yes (Death)
  Sender: FDA-Public Use
  Company Number: AU-SANOFI-AVENTIS-2011SA046637

PATIENT
  Age: 22 Year
  Sex: Female

DRUGS (8)
  1. METOCLOPRAMIDE HYDROCHLORIDE [Interacting]
     Route: 065
  2. FUROSEMIDE [Suspect]
     Route: 065
  3. METHYLENEDIOXYMETHAMPHETAMINE [Interacting]
     Route: 065
  4. METHADON AMIDONE HCL TAB [Interacting]
     Route: 065
  5. TETRAHYDROCANNABINOL [Interacting]
     Route: 065
  6. METHAMPHETAMINE HYDROCHLORIDE [Interacting]
     Route: 065
  7. MORPHINE SULFATE [Interacting]
     Route: 065
  8. ACETAMINOPHEN [Interacting]
     Route: 065

REACTIONS (2)
  - TOXICITY TO VARIOUS AGENTS [None]
  - DRUG INTERACTION [None]
